FAERS Safety Report 10594684 (Version 2)
Quarter: 2014Q4

REPORT INFORMATION
  Report Type: Spontaneous
  Country: US (occurrence: US)
  Receive Date: 20141120
  Receipt Date: 20141120
  Transmission Date: 20150529
  Serious: No
  Sender: FDA-Public Use
  Company Number: US-TEVA-505687USA

PATIENT
  Sex: Male

DRUGS (1)
  1. AMIODARONE [Suspect]
     Active Substance: AMIODARONE
     Dosage: 200 MILLIGRAM DAILY;
     Route: 048
     Dates: start: 201401, end: 20140627

REACTIONS (18)
  - Gynaecomastia [Not Recovered/Not Resolved]
  - Dry eye [Unknown]
  - Fatigue [Unknown]
  - Breast disorder male [Unknown]
  - Deposit eye [Unknown]
  - Adverse event [Unknown]
  - Pruritus [Unknown]
  - Hypothyroidism [Unknown]
  - Constipation [Unknown]
  - Erythema [Unknown]
  - Nipple disorder [Unknown]
  - Breast swelling [Unknown]
  - Gait disturbance [Unknown]
  - Coordination abnormal [Unknown]
  - Nipple swelling [Unknown]
  - Hallucination [Unknown]
  - Asthenia [Unknown]
  - Alopecia [Unknown]
